FAERS Safety Report 9844652 (Version 2)
Quarter: 2014Q3

REPORT INFORMATION
  Report Type: Spontaneous
  Country: US (occurrence: US)
  Receive Date: 20140127
  Receipt Date: 20140929
  Transmission Date: 20150326
  Serious: Yes (Other)
  Sender: FDA-Public Use
  Company Number: US-RANBAXY-2014US-77525

PATIENT
  Age: 53 Year
  Sex: Female
  Weight: 103.8 kg

DRUGS (1)
  1. TRIAMCINOLONE [Suspect]
     Active Substance: TRIAMCINOLONE
     Indication: BACK PAIN
     Dosage: 3 DOSES OF FLUOROSCOPICALLY GUIDED EPIDURAL TRIAMCINOLONE 80MG
     Route: 008

REACTIONS (2)
  - Hypothalamic pituitary adrenal axis suppression [Recovered/Resolved]
  - Cushing^s syndrome [Unknown]
